FAERS Safety Report 15477370 (Version 6)
Quarter: 2019Q1

REPORT INFORMATION
  Report Type: Spontaneous
  Country: GB (occurrence: GB)
  Receive Date: 20181009
  Receipt Date: 20190111
  Transmission Date: 20190417
  Serious: Yes (Hospitalization, Other)
  Sender: FDA-Public Use
  Company Number: GB-BRISTOL-MYERS SQUIBB COMPANY-BMS-2018-093949

PATIENT
  Age: 76 Year
  Sex: Male

DRUGS (1)
  1. ELIQUIS [Suspect]
     Active Substance: APIXABAN
     Indication: CEREBROVASCULAR ACCIDENT PROPHYLAXIS
     Dosage: 5 MG, UNK
     Route: 065
     Dates: start: 20180205, end: 20180815

REACTIONS (10)
  - Malaise [Unknown]
  - Pain in extremity [Not Recovered/Not Resolved]
  - Rectal haemorrhage [Unknown]
  - Muscular weakness [Not Recovered/Not Resolved]
  - Groin pain [Not Recovered/Not Resolved]
  - Duodenal ulcer haemorrhage [Unknown]
  - Haemorrhoids [Unknown]
  - Gastritis [Unknown]
  - Enterobacter sepsis [Unknown]
  - Syncope [Recovered/Resolved]

NARRATIVE: CASE EVENT DATE: 2018
